FAERS Safety Report 7135325-2 (Version None)
Quarter: 2010Q4

REPORT INFORMATION
  Report Type: 
  Country: None (occurrence: None)
  Receive Date: 20101203
  Receipt Date: 20101124
  Transmission Date: 20110411
  Serious: Yes (Hospitalization)
  Sender: FDA-Public Use
  Company Number: B0687350A

PATIENT
  Age: 68 Year
  Sex: Female
  Weight: 74 kg

DRUGS (5)
  1. LAPATINIB [Suspect]
     Indication: BREAST CANCER
     Dosage: 1250MG PER DAY
     Route: 048
     Dates: start: 20100114, end: 20100616
  2. CAPECITABINE [Suspect]
     Indication: BREAST CANCER
     Dosage: 1800MG PER DAY
     Route: 048
     Dates: start: 20100114, end: 20100616
  3. INSULIN ASPART [Concomitant]
     Indication: DIABETES MELLITUS
     Dates: start: 20050701
  4. INSULIN DETEMIR [Concomitant]
     Indication: DIABETES MELLITUS
     Dates: start: 20050601
  5. DURAGESIC-100 [Concomitant]
     Dates: start: 20100123

REACTIONS (8)
  - ALVEOLITIS [None]
  - BREAST CANCER METASTATIC [None]
  - HAEMATOCRIT DECREASED [None]
  - HAEMOGLOBIN DECREASED [None]
  - MALIGNANT NEOPLASM PROGRESSION [None]
  - NAUSEA [None]
  - PYREXIA [None]
  - VOMITING [None]
